FAERS Safety Report 24237892 (Version 1)
Quarter: 2024Q3

REPORT INFORMATION
  Report Type: Spontaneous
  Country: RO (occurrence: RO)
  Receive Date: 20240822
  Receipt Date: 20240822
  Transmission Date: 20241017
  Serious: Yes (Death, Hospitalization, Other)
  Sender: B BRAUN
  Company Number: RO-B.Braun Medical Inc.-2160726

PATIENT
  Age: 38 Year
  Sex: Female

DRUGS (1)
  1. ACETAMINOPHEN [Suspect]
     Active Substance: ACETAMINOPHEN

REACTIONS (7)
  - Sepsis [Fatal]
  - Exposure during pregnancy [Fatal]
  - Abdominal pain [Fatal]
  - Chills [Fatal]
  - Abortion spontaneous [Fatal]
  - Cholecystitis [Fatal]
  - Cardio-respiratory arrest [Fatal]
